FAERS Safety Report 8343397-2 (Version None)
Quarter: 2012Q2

REPORT INFORMATION
  Report Type: 
  Country: None (occurrence: None)
  Receive Date: 20120508
  Receipt Date: 20120427
  Transmission Date: 20120825
  Serious: Yes (Death, Hospitalization)
  Sender: FDA-Public Use
  Company Number: DE-BRISTOL-MYERS SQUIBB COMPANY-15451875

PATIENT
  Age: 69 Year
  Sex: Male
  Weight: 78 kg

DRUGS (7)
  1. TAMSULOSIN HYDROCHLORIDE [Concomitant]
     Dates: start: 20101129
  2. GEMCITABINE HYDROCHLORIDE [Suspect]
     Indication: NON-SMALL CELL LUNG CANCER
     Dosage: LAST DOSE ON 30NOV10 AND RESUMED ON 09DEC2010, ON DAY 8.
     Route: 042
     Dates: start: 20101130
  3. LAXOBERAL [Concomitant]
     Dates: start: 20101130
  4. PANTOPRAZOLE [Concomitant]
     Dates: start: 20101110
  5. BUPRENORPHINE [Concomitant]
     Dosage: TRANSTEC 35
     Dates: start: 20101127
  6. TAMSULOSIN HYDROCHLORIDE [Concomitant]
     Dates: start: 20101129
  7. CISPLATIN [Suspect]
     Indication: NON-SMALL CELL LUNG CANCER
     Dosage: LAST DOSE ON 30NOV10.HELD ON 9DEC10.RESTART DATE ON:22DEC12
     Route: 042
     Dates: start: 20101130

REACTIONS (2)
  - CONSTIPATION [None]
  - DEATH [None]
